FAERS Safety Report 4627923-2 (Version None)
Quarter: 2005Q2

REPORT INFORMATION
  Report Type: 
  Country: None (occurrence: None)
  Receive Date: 20050404
  Receipt Date: 20050404
  Transmission Date: 20051028
  Serious: No
  Sender: FDA-Public Use
  Company Number: None

PATIENT
  Age: 49 Year
  Sex: Female
  Weight: 58.0604 kg

DRUGS (2)
  1. PAXIL CR [Suspect]
     Indication: ANXIETY
     Dosage: 37.5 MG
     Dates: start: 20050115, end: 20050319
  2. PAXIL CR [Suspect]
     Indication: DEPRESSION
     Dosage: 37.5 MG
     Dates: start: 20050115, end: 20050319

REACTIONS (3)
  - DRUG WITHDRAWAL SYNDROME [None]
  - HEAD BANGING [None]
  - TREATMENT NONCOMPLIANCE [None]
